FAERS Safety Report 11225729 (Version 1)
Quarter: 2015Q2

REPORT INFORMATION
  Report Type: Spontaneous
  Country: US (occurrence: US)
  Receive Date: 20150629
  Receipt Date: 20150629
  Transmission Date: 20150821
  Serious: No
  Sender: FDA-Public Use
  Company Number: US-BAUSCH-BL-2014-011158

PATIENT
  Sex: Female

DRUGS (2)
  1. SOLODYN [Suspect]
     Active Substance: MINOCYCLINE HYDROCHLORIDE
     Route: 048
  2. SOLODYN [Suspect]
     Active Substance: MINOCYCLINE HYDROCHLORIDE
     Indication: ECZEMA
     Route: 048

REACTIONS (2)
  - Urticaria [Not Recovered/Not Resolved]
  - Intentional product use issue [Not Recovered/Not Resolved]
